FAERS Safety Report 9399027 (Version 3)
Quarter: 2013Q3

REPORT INFORMATION
  Report Type: Spontaneous
  Country: US (occurrence: US)
  Receive Date: 20130715
  Receipt Date: 20130801
  Transmission Date: 20140515
  Serious: Yes (Death)
  Sender: FDA-Public Use
  Company Number: US-PFIZER INC-2013204644

PATIENT
  Age: 69 Year
  Sex: Female

DRUGS (2)
  1. SUTENT [Suspect]
     Dosage: 12.5 MG, UNK
  2. SUTENT [Suspect]
     Dosage: 37.5 MG, UNK

REACTIONS (1)
  - Death [Fatal]
